FAERS Safety Report 20505952 (Version 1)
Quarter: 2022Q1

REPORT INFORMATION
  Report Type: Spontaneous
  Country: US (occurrence: None)
  Receive Date: 20220221
  Receipt Date: 20220221
  Transmission Date: 20220423
  Serious: Yes (Death)
  Sender: FDA-Public Use
  Company Number: None

PATIENT
  Age: 72 Year
  Sex: Female
  Weight: 51.75 kg

DRUGS (1)
  1. PROLIA [Suspect]
     Active Substance: DENOSUMAB
     Indication: Osteoporosis
     Dosage: OTHER FREQUENCY : EVERY 6 MONTHS;?
     Route: 058
     Dates: start: 20180103, end: 20210701

REACTIONS (4)
  - Lung carcinoma cell type unspecified stage IV [None]
  - Metastases to bone [None]
  - Metastases to central nervous system [None]
  - Diplopia [None]

NARRATIVE: CASE EVENT DATE: 20220219
